FAERS Safety Report 13939691 (Version 1)
Quarter: 2017Q3

REPORT INFORMATION
  Report Type: Spontaneous
  Country: US (occurrence: US)
  Receive Date: 20170906
  Receipt Date: 20170906
  Transmission Date: 20171127
  Serious: Yes (Other)
  Sender: FDA-Public Use
  Company Number: None

PATIENT
  Age: 52 Year
  Sex: Female
  Weight: 77.1 kg

DRUGS (1)
  1. FERRLECIT [Suspect]
     Active Substance: SODIUM FERRIC GLUCONATE COMPLEX
     Indication: THALASSAEMIA
     Dosage: ?          OTHER FREQUENCY:ONCE;?
     Route: 040
     Dates: start: 20170830, end: 20170830

REACTIONS (5)
  - Blood pressure fluctuation [None]
  - Nausea [None]
  - Vomiting [None]
  - Feeling abnormal [None]
  - Blood pressure decreased [None]

NARRATIVE: CASE EVENT DATE: 20170830
